FAERS Safety Report 24832102 (Version 1)
Quarter: 2025Q1

REPORT INFORMATION
  Report Type: Report from Study
  Country: ZA (occurrence: ZA)
  Receive Date: 20250110
  Receipt Date: 20250110
  Transmission Date: 20250409
  Serious: Yes (Death, Other)
  Sender: ALEXION PHARMACEUTICALS
  Company Number: ZA-AstraZeneca-CH-00781729A

PATIENT
  Age: 78 Year

DRUGS (20)
  1. DAPAGLIFLOZIN [Suspect]
     Active Substance: DAPAGLIFLOZIN
     Indication: Diabetes mellitus
  2. DAPAGLIFLOZIN [Suspect]
     Active Substance: DAPAGLIFLOZIN
     Route: 048
  3. DAPAGLIFLOZIN [Suspect]
     Active Substance: DAPAGLIFLOZIN
  4. DAPAGLIFLOZIN [Suspect]
     Active Substance: DAPAGLIFLOZIN
     Route: 048
  5. POTASSIUM CHLORIDE [Concomitant]
     Active Substance: POTASSIUM CHLORIDE
     Indication: Hypokalaemia
     Route: 048
  6. POTASSIUM CHLORIDE [Concomitant]
     Active Substance: POTASSIUM CHLORIDE
  7. FUROSEMIDE [Concomitant]
     Active Substance: FUROSEMIDE
     Indication: Hypertension
     Route: 048
  8. FUROSEMIDE [Concomitant]
     Active Substance: FUROSEMIDE
  9. QUETIAPINE [Concomitant]
     Active Substance: QUETIAPINE
     Route: 048
  10. QUETIAPINE [Concomitant]
     Active Substance: QUETIAPINE
  11. ASPIRIN [Concomitant]
     Active Substance: ASPIRIN
     Route: 048
  12. ASPIRIN [Concomitant]
     Active Substance: ASPIRIN
  13. Spiractin [Concomitant]
     Indication: Hypertension
     Route: 048
  14. Spiractin [Concomitant]
  15. Lipogen [Concomitant]
     Indication: Blood cholesterol
     Route: 048
  16. Lipogen [Concomitant]
  17. BISOPROLOL FUMARATE [Concomitant]
     Active Substance: BISOPROLOL FUMARATE
     Indication: Hypertension
     Route: 048
  18. BISOPROLOL FUMARATE [Concomitant]
     Active Substance: BISOPROLOL FUMARATE
  19. Tramazac [Concomitant]
     Indication: Pain
     Route: 048
  20. Tramazac [Concomitant]

REACTIONS (1)
  - Death [Fatal]
